FAERS Safety Report 8783420 (Version 1)
Quarter: 2012Q4

REPORT INFORMATION
  Report Type: 
  Country: US (occurrence: US)
  Receive Date: 20120913
  Receipt Date: 20120913
  Transmission Date: 20130627
  Serious: No
  Sender: FDA-Public Use
  Company Number: US-VERTEX PHARMACEUTICAL INC.-AE-2012-008490

PATIENT
  Age: 62 Year
  Sex: Male
  Weight: 118.18 kg

DRUGS (12)
  1. INCIVEK [Suspect]
     Indication: HEPATITIS C
     Route: 048
     Dates: start: 20120316, end: 20120607
  2. RIBAVIRIN [Concomitant]
     Indication: HEPATITIS C
     Route: 048
     Dates: start: 20120316
  3. RIBAVIRIN [Concomitant]
     Route: 048
     Dates: start: 20120316
  4. PEGASYS [Concomitant]
     Indication: HEPATITIS C
     Route: 058
     Dates: start: 20120316
  5. RESTORIL [Concomitant]
     Route: 048
     Dates: start: 20120607
  6. AMBIEN [Concomitant]
     Route: 048
  7. VESICARE [Concomitant]
     Route: 048
  8. NEURONTIN [Concomitant]
     Route: 048
  9. MONOPRIL [Concomitant]
     Route: 048
  10. JANUVIA [Concomitant]
     Route: 048
  11. HYDROXYZINE HCI [Concomitant]
     Route: 048
     Dates: start: 20120607
  12. IBUPROFEN [Concomitant]
     Route: 048

REACTIONS (5)
  - Abdominal pain [Recovered/Resolved]
  - Nasopharyngitis [Not Recovered/Not Resolved]
  - Chills [Not Recovered/Not Resolved]
  - Anaemia [Not Recovered/Not Resolved]
  - Pruritus [Not Recovered/Not Resolved]
